FAERS Safety Report 15979475 (Version 1)
Quarter: 2019Q1

REPORT INFORMATION
  Report Type: Spontaneous
  Country: US (occurrence: US)
  Receive Date: 20190217
  Receipt Date: 20190217
  Transmission Date: 20190418
  Serious: Yes (Other)
  Sender: FDA-Public Use
  Company Number: None

PATIENT
  Age: 39 Year
  Sex: Female
  Weight: 141.75 kg

DRUGS (6)
  1. B VITAMINS [Concomitant]
     Active Substance: CYANOCOBALAMIN\DEXPANTHENOL\NIACINAMIDE\PYRIDOXINE HYDROCHLORIDE\RIBOFLAVIN 5^-PHOSPHATE SODIUM\THIAMINE HYDROCHLORIDE\VITAMIN B COMPLEX
  2. FENTANYL TRANSDERMAL SYSTEM [Suspect]
     Active Substance: FENTANYL
     Indication: PAIN
     Dosage: ?          QUANTITY:5 PATCH(ES);OTHER FREQUENCY:48 HOURS;?
     Route: 062
  3. SPINAL CORD STIMULATION [Concomitant]
  4. NATURE THRYOD [Concomitant]
  5. KETOMEAN [Concomitant]
  6. CYMBALTA [Concomitant]
     Active Substance: DULOXETINE HYDROCHLORIDE

REACTIONS (2)
  - Drug ineffective [None]
  - Product quality issue [None]

NARRATIVE: CASE EVENT DATE: 20190214
